FAERS Safety Report 16784515 (Version 5)
Quarter: 2019Q4

REPORT INFORMATION
  Report Type: Report from Study
  Country: BE (occurrence: BE)
  Receive Date: 20190909
  Receipt Date: 20191227
  Transmission Date: 20200122
  Serious: Yes (Hospitalization)
  Sender: FDA-Public Use
  Company Number: BE-ROCHE-2394364

PATIENT
  Age: 40 Year
  Sex: Female
  Weight: 98 kg

DRUGS (17)
  1. CALMIDERM [Concomitant]
     Indication: RASH
     Route: 065
     Dates: start: 20190516
  2. DOXORUBICIN [Suspect]
     Active Substance: DOXORUBICIN
     Indication: TRIPLE NEGATIVE BREAST CANCER
     Dosage: DATE OF MOST RECENT DOSE OF DOXORUBICIN PRIOR TO AE ONSET: 16/AUG/2019, AT 13:57
     Route: 042
     Dates: start: 20190816
  3. NAB-PACLITAXEL [Suspect]
     Active Substance: PACLITAXEL
     Indication: TRIPLE NEGATIVE BREAST CANCER
     Dosage: MOST RECENT DOSE ON 09/AUG/2019, 196 MG, AT 16:01.
     Route: 042
     Dates: start: 20190513
  4. RIVOTRIL [Concomitant]
     Active Substance: CLONAZEPAM
     Indication: MYALGIA
     Route: 065
     Dates: start: 20190712, end: 20190726
  5. ATEZOLIZUMAB. [Suspect]
     Active Substance: ATEZOLIZUMAB
     Indication: TRIPLE NEGATIVE BREAST CANCER
     Dosage: MOST RECENT DOSE ON 16/AUG/2019
     Route: 042
     Dates: start: 20190513
  6. CICAPLAST [Concomitant]
     Indication: ERYTHEMA
     Route: 065
     Dates: start: 20190702
  7. DEXAMETHASONE. [Concomitant]
     Active Substance: DEXAMETHASONE
     Route: 042
     Dates: start: 20190826, end: 20191003
  8. ISOBETADINE [Concomitant]
     Indication: NAIL DISORDER
     Route: 065
     Dates: start: 20190827, end: 20190827
  9. CLONAZONE [Concomitant]
     Indication: NAIL DISORDER
     Route: 065
     Dates: start: 20190816
  10. INNOHEP [Concomitant]
     Active Substance: TINZAPARIN SODIUM
     Indication: THROMBOSIS PROPHYLAXIS
     Route: 065
     Dates: start: 20190826, end: 20190827
  11. DERMOVAT [CLOBETASOL PROPIONATE] [Concomitant]
     Indication: RASH
     Dosage: DOSE: 1 UNIT: U
     Route: 061
     Dates: start: 20190702, end: 20190917
  12. CYCLOPHOSPHAMIDE. [Suspect]
     Active Substance: CYCLOPHOSPHAMIDE
     Indication: TRIPLE NEGATIVE BREAST CANCER
     Dosage: DATE OF MOST RECENT DOSE OF CYCLOPHOSPHAMIDE PRIOR TO AE ONSET 16/AUG/2019, AT 14:35
     Route: 042
     Dates: start: 20190816
  13. XYZALL [Concomitant]
     Active Substance: LEVOCETIRIZINE DIHYDROCHLORIDE
     Indication: RASH
     Route: 065
     Dates: start: 20190520, end: 20190917
  14. TRAZOLAN [Concomitant]
     Active Substance: TRAZODONE HYDROCHLORIDE
     Indication: DEPRESSION
     Route: 065
     Dates: start: 20151101
  15. ONDANSETRON [Concomitant]
     Active Substance: ONDANSETRON
     Route: 065
     Dates: start: 20190826, end: 20191003
  16. APREPITANT. [Concomitant]
     Active Substance: APREPITANT
     Route: 065
     Dates: start: 20190816, end: 20191005
  17. LITICAN [ALIZAPRIDE HYDROCHLORIDE] [Concomitant]
     Indication: NAUSEA
     Route: 065
     Dates: start: 20190903

REACTIONS (1)
  - Stomatitis [Recovered/Resolved]

NARRATIVE: CASE EVENT DATE: 20190824
